FAERS Safety Report 14691593 (Version 1)
Quarter: 2018Q1

REPORT INFORMATION
  Report Type: Spontaneous
  Country: US (occurrence: US)
  Receive Date: 20180328
  Receipt Date: 20180328
  Transmission Date: 20180509
  Serious: Yes (Other)
  Sender: FDA-Public Use
  Company Number: US-009507513-1803USA009211

PATIENT

DRUGS (1)
  1. CUBICIN [Suspect]
     Active Substance: DAPTOMYCIN

REACTIONS (1)
  - Neutropenia [Unknown]
